FAERS Safety Report 7736960-0 (Version None)
Quarter: 2011Q3

REPORT INFORMATION
  Report Type: 
  Country: None (occurrence: None)
  Receive Date: 20110908
  Receipt Date: 20110905
  Transmission Date: 20111222
  Serious: Yes (Hospitalization)
  Sender: FDA-Public Use
  Company Number: IT-ROXANE LABORATORIES, INC.-2011-RO-01212RO

PATIENT
  Age: 6 Year
  Sex: Female

DRUGS (5)
  1. AMPICILLIN AND SULBACTAM [Suspect]
     Indication: PNEUMONIA MYCOPLASMAL
     Route: 042
  2. MEROPENEM [Suspect]
     Indication: PNEUMONIA MYCOPLASMAL
     Route: 042
  3. ALBUTEROL SULFATE AUTOHALER [Concomitant]
  4. CLARITHROMYCIN [Suspect]
     Indication: PNEUMONIA MYCOPLASMAL
     Route: 042
  5. TEICOPLANIN [Suspect]
     Indication: PNEUMONIA MYCOPLASMAL
     Route: 042

REACTIONS (1)
  - DRUG RESISTANCE [None]
